FAERS Safety Report 9444902 (Version 1)
Quarter: 2013Q3

REPORT INFORMATION
  Report Type: Spontaneous
  Country: DE (occurrence: SE)
  Receive Date: 20130807
  Receipt Date: 20130807
  Transmission Date: 20140515
  Serious: Yes (Other)
  Sender: FDA-Public Use
  Company Number: SE-FRI-1000047581

PATIENT
  Age: 62 Year
  Sex: Male

DRUGS (6)
  1. ROFLUMILAST [Suspect]
     Indication: BRONCHITIS CHRONIC
     Dosage: 500  MCG
     Route: 048
     Dates: start: 20120906
  2. SYMBICORT FORTE [Concomitant]
     Route: 055
  3. SPIRIVA [Concomitant]
  4. ONBREZ [Concomitant]
  5. BRICANYL [Concomitant]
     Route: 055
  6. TROMBYL [Concomitant]

REACTIONS (1)
  - Semen discolouration [Unknown]
